FAERS Safety Report 8197869-4 (Version None)
Quarter: 2012Q1

REPORT INFORMATION
  Report Type: 
  Country: None (occurrence: None)
  Receive Date: 20120309
  Receipt Date: 20120301
  Transmission Date: 20120608
  Serious: Yes (Hospitalization, Other)
  Sender: FDA-Public Use
  Company Number: US-UCBSA-052606

PATIENT
  Age: 46 Year
  Sex: Male
  Weight: 102.05 kg

DRUGS (5)
  1. COLCHICINE [Concomitant]
     Indication: CROHN'S DISEASE
     Dosage: ABOUT FOR A YEAR
     Dates: start: 20110101
  2. DYAZIDE [Concomitant]
     Indication: HYPERTENSION
     Dosage: DOSE PER INTAKE: 37.5/25MG; THERAPY FROM:7-8 YEARS AGO
  3. PRAVACHOL [Concomitant]
     Indication: BLOOD CHOLESTEROL
     Dosage: ONE AT BEDTIME; THERAPY DATE:ABOUT 4 YEARS
  4. CIMZIA [Suspect]
     Indication: CROHN'S DISEASE
     Dosage: INDUCTION DOSES AT 0,2 AND 4 WEEKS, THEN ONCE A MONTH, SELF ADMIN IN RIGHT THIGH
     Route: 058
     Dates: start: 20120130, end: 20120227
  5. TOPROL-XL [Concomitant]
     Indication: HYPERTENSION
     Dosage: THERAPY START DATE: ABOUT 4 YEARS

REACTIONS (1)
  - OESOPHAGEAL CANDIDIASIS [None]
